FAERS Safety Report 10172155 (Version 1)
Quarter: 2014Q2

REPORT INFORMATION
  Report Type: Spontaneous
  Country: CA (occurrence: CA)
  Receive Date: 20140515
  Receipt Date: 20140515
  Transmission Date: 20141212
  Serious: Yes (Other)
  Sender: FDA-Public Use
  Company Number: CHPA2014CA006465

PATIENT
  Sex: 0

DRUGS (1)
  1. BUCKLEY^S UNKNOWN [Suspect]
     Indication: NASOPHARYNGITIS
     Dosage: 2 DF, UNK
     Route: 048

REACTIONS (3)
  - Pharyngeal oedema [Unknown]
  - Swollen tongue [Unknown]
  - Tongue pruritus [Unknown]
